FAERS Safety Report 8932685 (Version 1)
Quarter: 2012Q4

REPORT INFORMATION
  Report Type: Report from Study
  Country: US (occurrence: US)
  Receive Date: 20121128
  Receipt Date: 20121128
  Transmission Date: 20130627
  Serious: Yes (Hospitalization)
  Sender: FDA-Public Use
  Company Number: US-ABBOTT-12P-163-1010234-00

PATIENT
  Age: 34 Year
  Sex: Male
  Weight: 51.3 kg

DRUGS (1)
  1. HUMIRA PEN [Suspect]
     Indication: CROHN^S DISEASE

REACTIONS (8)
  - Weight decreased [Unknown]
  - Crohn^s disease [Recovered/Resolved]
  - Abdominal pain [Recovered/Resolved]
  - Vomiting [Recovered/Resolved]
  - Blood iron decreased [Unknown]
  - Gastrointestinal inflammation [Unknown]
  - Gastrointestinal infection [Unknown]
  - Colonic obstruction [Unknown]
